FAERS Safety Report 9209547 (Version 1)
Quarter: 2013Q2

REPORT INFORMATION
  Report Type: Spontaneous
  Country: US (occurrence: US)
  Receive Date: 20130404
  Receipt Date: 20130404
  Transmission Date: 20140414
  Serious: Yes (Other)
  Sender: FDA-Public Use
  Company Number: US-JNJFOC-20130316519

PATIENT
  Sex: Female
  Weight: 74.84 kg

DRUGS (1)
  1. SIMPONI [Suspect]
     Indication: RHEUMATOID ARTHRITIS
     Route: 058
     Dates: start: 200901

REACTIONS (5)
  - Autoimmune disorder [Unknown]
  - Weight increased [Not Recovered/Not Resolved]
  - Swelling [Recovered/Resolved]
  - Fluid retention [Recovered/Resolved]
  - Blood thyroid stimulating hormone increased [Unknown]
